FAERS Safety Report 10253116 (Version 3)
Quarter: 2014Q4

REPORT INFORMATION
  Report Type: Spontaneous
  Country: US (occurrence: US)
  Receive Date: 20140623
  Receipt Date: 20141105
  Transmission Date: 20150528
  Serious: Yes (Other)
  Sender: FDA-Public Use
  Company Number: US-GLAXOSMITHKLINE-A1077335A

PATIENT
  Sex: Male

DRUGS (15)
  1. OXYGEN. [Concomitant]
     Active Substance: OXYGEN
  2. GLIMEPIRIDE. [Concomitant]
     Active Substance: GLIMEPIRIDE
  3. ONE A DAY MENS MULTIVITAMIN [Concomitant]
  4. ISOSORBIDE DINITRATE. [Concomitant]
     Active Substance: ISOSORBIDE DINITRATE
  5. ADVAIR HFA [Suspect]
     Active Substance: FLUTICASONE PROPIONATE\SALMETEROL XINAFOATE
     Indication: CHRONIC OBSTRUCTIVE PULMONARY DISEASE
     Dates: start: 2004
  6. GEMFIBROZIL. [Concomitant]
     Active Substance: GEMFIBROZIL
  7. FUROSEMIDE. [Concomitant]
     Active Substance: FUROSEMIDE
  8. ADVAIR HFA [Suspect]
     Active Substance: FLUTICASONE PROPIONATE\SALMETEROL XINAFOATE
     Indication: ASTHMA
     Dosage: 250/50
     Route: 055
     Dates: start: 2004
  9. ADVAIR HFA [Suspect]
     Active Substance: FLUTICASONE PROPIONATE\SALMETEROL XINAFOATE
     Indication: EMPHYSEMA
  10. ASPIRIN. [Concomitant]
     Active Substance: ASPIRIN
  11. INHALER [Concomitant]
     Active Substance: UNSPECIFIED INGREDIENT
  12. FISH OIL [Concomitant]
     Active Substance: FISH OIL
  13. CRESTOR [Concomitant]
     Active Substance: ROSUVASTATIN CALCIUM
  14. LISINOPRIL. [Concomitant]
     Active Substance: LISINOPRIL
  15. GABAPENTIN. [Concomitant]
     Active Substance: GABAPENTIN

REACTIONS (5)
  - Pulmonary function test decreased [Recovering/Resolving]
  - Drug effect decreased [Unknown]
  - Hypoxia [Recovering/Resolving]
  - Dyspnoea exertional [Recovering/Resolving]
  - Drug ineffective [Unknown]
